FAERS Safety Report 6999486-8 (Version None)
Quarter: 2010Q3

REPORT INFORMATION
  Report Type: 
  Country: None (occurrence: None)
  Receive Date: 20100920
  Receipt Date: 20070717
  Transmission Date: 20110219
  Serious: Yes (Hospitalization)
  Sender: FDA-Public Use
  Company Number: US-ASTRAZENECA-2007UW03790

PATIENT
  Age: 19750 Day
  Sex: Male
  Weight: 123.4 kg

DRUGS (19)
  1. SEROQUEL [Suspect]
     Indication: SCHIZOPHRENIA
     Route: 048
     Dates: start: 19970101, end: 20060701
  2. SEROQUEL [Suspect]
     Route: 048
     Dates: start: 20030313
  3. ABILIFY [Concomitant]
     Dates: start: 20060101
  4. ABILIFY [Concomitant]
     Dates: start: 20070410
  5. HALDOL [Concomitant]
  6. HALDOL [Concomitant]
     Dosage: AS REQUIRED
     Dates: start: 20030313
  7. SINEMET [Concomitant]
     Dosage: 25/100 THREE TIMES A DAY
     Dates: start: 20030301
  8. DEPAKOTE [Concomitant]
     Dosage: STRENGTH: 500 MG, 1500 MG. DOSE: 1500 MG DAILY
     Dates: start: 20030313
  9. ATIVAN [Concomitant]
     Route: 048
     Dates: start: 20030313
  10. ATIVAN [Concomitant]
     Dosage: TWO TIMES A DAY
     Route: 030
     Dates: start: 20030313
  11. COGENTIN [Concomitant]
     Dosage: ONE TO TWO AS REQUIRED
     Dates: start: 20030313
  12. CATAPRES [Concomitant]
     Dosage: AS REQUIRED
     Dates: start: 20030313
  13. VISTARIL [Concomitant]
     Dosage: AS REQUIRED
     Dates: start: 20030313
  14. DESYREL [Concomitant]
     Dosage: AS REQUIRED
     Dates: start: 20030313
  15. TRANXENE [Concomitant]
     Dates: start: 19990927
  16. NAVANE [Concomitant]
     Dates: start: 19990927
  17. DESIPRAMINE HCL [Concomitant]
     Dates: start: 19990927
  18. AVALIDE [Concomitant]
     Dosage: STRENGTH: 150/12.5 MG. DOSE: 150/12.5 MG DAILY
     Dates: start: 20050217
  19. NAPROXEN [Concomitant]
     Dosage: 500 MG TWO TIMES A DAY AS REQUIRED
     Dates: start: 20050217

REACTIONS (2)
  - PARKINSON'S DISEASE [None]
  - TYPE 2 DIABETES MELLITUS [None]
